FAERS Safety Report 7282915-2 (Version None)
Quarter: 2011Q1

REPORT INFORMATION
  Report Type: 
  Country: None (occurrence: None)
  Receive Date: 20110209
  Receipt Date: 20101220
  Transmission Date: 20110831
  Serious: Yes (Hospitalization)
  Sender: FDA-Public Use
  Company Number: US-BAYER-201035963NA

PATIENT
  Sex: Female
  Weight: 100.68 kg

DRUGS (9)
  1. ALEVE [Concomitant]
     Indication: PAIN
  2. PENICILLIN [Concomitant]
     Indication: DENTAL CARIES
     Dosage: UNK
     Dates: start: 20080904, end: 20080914
  3. HYDROCODONE BITARTRATE AND ACETAMINOPHEN [Concomitant]
     Indication: TOOTHACHE
     Dosage: UNK
     Dates: start: 20080904, end: 20080906
  4. CITALOPRAM [Concomitant]
     Indication: ANXIETY
     Dosage: UNK
     Dates: start: 20080101
  5. YASMIN [Suspect]
     Indication: CONTRACEPTION
     Route: 048
     Dates: start: 20080530, end: 20080826
  6. YASMIN [Suspect]
     Indication: PREMENSTRUAL SYNDROME
  7. CITALOPRAM [Concomitant]
     Indication: DEPRESSION
  8. ADVIL LIQUI-GELS [Concomitant]
     Indication: PAIN
  9. ACETAMINOPHEN [Concomitant]
     Indication: PAIN

REACTIONS (7)
  - COLD SWEAT [None]
  - BILIARY DYSKINESIA [None]
  - BILIARY COLIC [None]
  - ABDOMINAL PAIN UPPER [None]
  - CHOLELITHIASIS [None]
  - PYREXIA [None]
  - NAUSEA [None]
